FAERS Safety Report 19033866 (Version 2)
Quarter: 2021Q2

REPORT INFORMATION
  Report Type: Spontaneous
  Country: BR (occurrence: BR)
  Receive Date: 20210320
  Receipt Date: 20210406
  Transmission Date: 20210717
  Serious: Yes (Death, Hospitalization, Other)
  Sender: FDA-Public Use
  Company Number: BR-MACLEODS PHARMACEUTICALS US LTD-MAC2021030444

PATIENT

DRUGS (7)
  1. LAMIVUDINE 300 MG/TENOFOVIR DISOPROXIL FUMARATE 300 MG TABLETS [Suspect]
     Active Substance: LAMIVUDINE\TENOFOVIR DISOPROXIL FUMARATE
     Indication: ACQUIRED IMMUNODEFICIENCY SYNDROME
  2. CLINDAMYCIN 300 MG [Suspect]
     Active Substance: CLINDAMYCIN PHOSPHATE
     Indication: TOXOPLASMOSIS
     Dosage: 600 MILLIGRAM, QID, 2 TABLETS
     Route: 048
  3. LAMIVUDINE 300 MG/TENOFOVIR DISOPROXIL FUMARATE 300 MG TABLETS [Suspect]
     Active Substance: LAMIVUDINE\TENOFOVIR DISOPROXIL FUMARATE
     Indication: HIV INFECTION
     Dosage: 1 DOSAGE FORM, QD
     Route: 048
  4. SODIUM CHLORIDE. [Concomitant]
     Active Substance: SODIUM CHLORIDE
     Indication: FLUID REPLACEMENT
     Dosage: 1000 MILLIGRAM, TID, EVERY 8 HOURS
     Route: 042
  5. HYDROXYZINE [Concomitant]
     Active Substance: HYDROXYZINE HYDROCHLORIDE
     Indication: TOXOPLASMOSIS
     Dosage: 25 MILLIGRAM, TID, EVERY 8 HRS
     Route: 048
  6. DOLUTEGRAVIR 50 MG [Suspect]
     Active Substance: DOLUTEGRAVIR
     Indication: HIV INFECTION
  7. DOLUTEGRAVIR 50 MG [Suspect]
     Active Substance: DOLUTEGRAVIR
     Indication: ACQUIRED IMMUNODEFICIENCY SYNDROME
     Dosage: 50 MILLIGRAM, QD
     Route: 048

REACTIONS (4)
  - Death [Fatal]
  - Drug-induced liver injury [Unknown]
  - Drug eruption [Recovered/Resolved]
  - Rash erythematous [Recovered/Resolved]
